FAERS Safety Report 20862873 (Version 2)
Quarter: 2022Q2

REPORT INFORMATION
  Report Type: Spontaneous
  Country: FR (occurrence: FR)
  Receive Date: 20220523
  Receipt Date: 20220527
  Transmission Date: 20220721
  Serious: Yes (Hospitalization, Other)
  Sender: FDA-Public Use
  Company Number: None

PATIENT

DRUGS (16)
  1. VALIUM [Suspect]
     Active Substance: DIAZEPAM
     Indication: Anxiety
     Dosage: 10 MG, TID
     Route: 048
     Dates: start: 202204, end: 20220503
  2. IMOVANE [Suspect]
     Active Substance: ZOPICLONE
     Indication: Sleep disorder
     Dosage: 7.5 MG, QD
     Route: 048
     Dates: end: 20220503
  3. PAROXETINE HYDROCHLORIDE [Suspect]
     Active Substance: PAROXETINE HYDROCHLORIDE
     Indication: Mental disorder
     Dosage: 20 MG, QD
     Route: 048
  4. PAROXETINE HYDROCHLORIDE [Suspect]
     Active Substance: PAROXETINE HYDROCHLORIDE
     Dosage: 20 MG
     Route: 048
  5. FLUTICASONE FUROATE\VILANTEROL TRIFENATATE [Suspect]
     Active Substance: FLUTICASONE FUROATE\VILANTEROL TRIFENATATE
     Indication: Asthma
     Dosage: UNK
     Route: 045
  6. DEPAKOTE [Suspect]
     Active Substance: DIVALPROEX SODIUM
     Indication: Mental disorder
     Dosage: 1 G, BID
     Route: 048
  7. DEPAKOTE [Suspect]
     Active Substance: DIVALPROEX SODIUM
     Dosage: 1 G
     Route: 048
  8. NICOPASS [Suspect]
     Active Substance: NICOTINE
     Indication: Ex-tobacco user
     Dosage: UNK
     Route: 048
     Dates: start: 202204
  9. TRIMEPRAZINE TARTRATE [Suspect]
     Active Substance: TRIMEPRAZINE TARTRATE
     Indication: Sleep disorder
     Dosage: 40 MG, QD
     Route: 048
  10. TRIMEPRAZINE TARTRATE [Suspect]
     Active Substance: TRIMEPRAZINE TARTRATE
     Dosage: 40 MG
     Route: 048
  11. INNOVAIR [Suspect]
     Active Substance: BECLOMETHASONE DIPROPIONATE\FORMOTEROL
     Indication: Asthma
     Dosage: UNK
     Route: 045
     Dates: start: 202204, end: 20220503
  12. NICOPATCH [Suspect]
     Active Substance: NICOTINE
     Indication: Ex-tobacco user
     Dosage: UNK
     Route: 003
     Dates: start: 202204
  13. OXOMEMAZINE [Suspect]
     Active Substance: OXOMEMAZINE
     Indication: Product used for unknown indication
     Dosage: 3.3 MG, QD
     Route: 048
     Dates: end: 20220503
  14. LOXAPINE [Suspect]
     Active Substance: LOXAPINE
     Indication: Mental disorder
     Dosage: 100 MG, QD
     Route: 048
  15. LOXAPINE [Suspect]
     Active Substance: LOXAPINE
     Dosage: 100 MG
     Route: 048
  16. NICOTINE [Suspect]
     Active Substance: NICOTINE
     Indication: Ex-tobacco user
     Dosage: UNK
     Route: 048
     Dates: start: 202204

REACTIONS (1)
  - Haemolytic anaemia [Not Recovered/Not Resolved]

NARRATIVE: CASE EVENT DATE: 20220503
